FAERS Safety Report 7063987-7 (Version None)
Quarter: 2010Q4

REPORT INFORMATION
  Report Type: 
  Country: None (occurrence: None)
  Receive Date: 20101026
  Receipt Date: 20101014
  Transmission Date: 20110411
  Serious: No
  Sender: FDA-Public Use
  Company Number: US-ABBOTT-10P-163-0679007-00

PATIENT
  Sex: Female
  Weight: 61.29 kg

DRUGS (8)
  1. LUPRON DEPOT [Suspect]
     Indication: ENDOMETRIOSIS
     Dates: start: 20100820
  2. NORETHINDRONE [Concomitant]
     Indication: PRODUCT USED FOR UNKNOWN INDICATION
     Dates: start: 20100801
  3. CYMBALTA [Concomitant]
     Indication: DEPRESSION
     Dates: start: 20100901
  4. CYMBALTA [Concomitant]
     Dates: end: 20100901
  5. FLEXERIL [Concomitant]
     Indication: PRODUCT USED FOR UNKNOWN INDICATION
  6. ZOFRAN [Concomitant]
     Indication: NAUSEA
  7. TRAZODONE [Concomitant]
     Indication: PRODUCT USED FOR UNKNOWN INDICATION
  8. OXYCODONE HCL [Concomitant]
     Indication: PRODUCT USED FOR UNKNOWN INDICATION

REACTIONS (5)
  - DEPRESSION [None]
  - FEELING ABNORMAL [None]
  - MOOD SWINGS [None]
  - NIGHT SWEATS [None]
  - PNEUMONIA [None]
